FAERS Safety Report 5355826-7 (Version None)
Quarter: 2007Q2

REPORT INFORMATION
  Report Type: 
  Country: None (occurrence: None)
  Receive Date: 20070613
  Receipt Date: 20070604
  Transmission Date: 20071010
  Serious: Yes (Life-Threatening, Hospitalization)
  Sender: FDA-Public Use
  Company Number: JP-JNJFOC-20070406323

PATIENT
  Sex: Female
  Weight: 62 kg

DRUGS (15)
  1. REMICADE [Suspect]
     Route: 042
  2. REMICADE [Suspect]
     Indication: RHEUMATOID ARTHRITIS
     Route: 042
  3. RHEUMATREX [Suspect]
     Indication: RHEUMATOID ARTHRITIS
     Route: 048
  4. GASLON N [Concomitant]
  5. BEHYD-RA [Concomitant]
     Route: 048
  6. BUFFERIN [Concomitant]
     Route: 048
  7. NORVASC [Concomitant]
     Route: 048
  8. NITOROL R [Concomitant]
     Route: 048
  9. SIMVASTATIN [Concomitant]
     Route: 048
  10. INFREE S [Concomitant]
     Route: 048
  11. BENET [Concomitant]
     Route: 048
  12. VOLTAREN [Concomitant]
  13. FOLIAMIN [Concomitant]
  14. TAKEPRON [Concomitant]
  15. ROHYPNOL [Concomitant]

REACTIONS (1)
  - B-CELL LYMPHOMA [None]
